FAERS Safety Report 5980095-4 (Version None)
Quarter: 2008Q4

REPORT INFORMATION
  Report Type: 
  Country: None (occurrence: None)
  Receive Date: 20081205
  Receipt Date: 20081128
  Transmission Date: 20090506
  Serious: Yes (Hospitalization)
  Sender: FDA-Public Use
  Company Number: FR-AVENTIS-200814210FR

PATIENT
  Age: 76 Year
  Sex: Female

DRUGS (11)
  1. LASIX [Suspect]
     Route: 048
     Dates: end: 20080206
  2. NITRODERM [Suspect]
     Indication: CARDIOVASCULAR EVENT PROPHYLAXIS
     Route: 023
     Dates: end: 20080206
  3. ESIDRIX [Suspect]
     Route: 048
     Dates: end: 20080206
  4. ALDACTONE [Suspect]
     Route: 048
     Dates: end: 20080206
  5. TAREG [Suspect]
     Route: 048
  6. HUMALOG [Concomitant]
     Route: 058
  7. SOMATULINE [Concomitant]
     Indication: THYROIDECTOMY
     Route: 058
  8. LEVOTHYROX [Concomitant]
     Indication: THYROIDECTOMY
     Route: 048
  9. TARDYFERON                         /00023503/ [Concomitant]
     Indication: IRON DEFICIENCY
     Route: 048
  10. TAHOR [Concomitant]
     Route: 048
     Dates: end: 20080206
  11. MOPRAL [Concomitant]
     Indication: DRUG USE FOR UNKNOWN INDICATION
     Route: 048
     Dates: end: 20080206

REACTIONS (3)
  - FALL [None]
  - HYPONATRAEMIA [None]
  - MALAISE [None]
